FAERS Safety Report 12133288 (Version 1)
Quarter: 2016Q1

REPORT INFORMATION
  Report Type: Spontaneous
  Country: US (occurrence: US)
  Receive Date: 20160301
  Receipt Date: 20160301
  Transmission Date: 20160526
  Serious: Yes (Life-Threatening, Other)
  Sender: FDA-Public Use
  Company Number: US-BAYER-2016-034979

PATIENT
  Age: 19 Year
  Sex: Female

DRUGS (2)
  1. GADAVIST [Suspect]
     Active Substance: GADOBUTROL
     Indication: OVARIAN CYST
  2. GADAVIST [Suspect]
     Active Substance: GADOBUTROL
     Indication: ULTRASOUND OVARY
     Dosage: 1MM/ML, ONCE
     Route: 042
     Dates: start: 20160208, end: 20160208

REACTIONS (7)
  - Fall [None]
  - Anaphylactic reaction [None]
  - Product use issue [None]
  - Cardiac arrest [None]
  - Malaise [None]
  - Respiratory arrest [None]
  - Seizure [None]

NARRATIVE: CASE EVENT DATE: 20160208
